FAERS Safety Report 20200894 (Version 4)
Quarter: 2022Q3

REPORT INFORMATION
  Report Type: Spontaneous
  Country: US (occurrence: None)
  Receive Date: 20211217
  Receipt Date: 20220727
  Transmission Date: 20221027
  Serious: Yes (Other)
  Sender: FDA-Public Use
  Company Number: 2021A869690

PATIENT
  Age: 59 Year
  Sex: Female
  Weight: 93.9 kg

DRUGS (59)
  1. PRILOSEC [Suspect]
     Active Substance: OMEPRAZOLE MAGNESIUM
     Indication: Gastrooesophageal reflux disease
     Route: 048
     Dates: start: 2016, end: 2019
  2. PRILOSEC [Suspect]
     Active Substance: OMEPRAZOLE MAGNESIUM
     Indication: Gastrooesophageal reflux disease
     Route: 048
     Dates: start: 2014, end: 2019
  3. PRILOSEC [Suspect]
     Active Substance: OMEPRAZOLE MAGNESIUM
     Indication: Gastrooesophageal reflux disease
     Dosage: GENERIC
     Route: 065
     Dates: start: 2014
  4. PROTONIX [Suspect]
     Active Substance: PANTOPRAZOLE SODIUM
     Indication: Gastrooesophageal reflux disease
     Route: 065
     Dates: start: 2016, end: 2019
  5. PROTONIX [Suspect]
     Active Substance: PANTOPRAZOLE SODIUM
     Indication: Gastrooesophageal reflux disease
     Route: 065
     Dates: start: 2016, end: 2019
  6. PROTONIX [Suspect]
     Active Substance: PANTOPRAZOLE SODIUM
     Indication: Gastrooesophageal reflux disease
     Dosage: GENERIC
     Route: 065
     Dates: start: 2018, end: 2019
  7. INDOMETHACIN [Concomitant]
     Active Substance: INDOMETHACIN
     Indication: Analgesic therapy
     Route: 065
     Dates: start: 2019
  8. MELOXICAM [Concomitant]
     Active Substance: MELOXICAM
     Indication: Analgesic therapy
     Route: 065
     Dates: start: 2018, end: 2019
  9. MOBIC [Concomitant]
     Active Substance: MELOXICAM
     Indication: Analgesic therapy
     Route: 065
     Dates: start: 2018, end: 2019
  10. TRAMADOL [Concomitant]
     Active Substance: TRAMADOL
     Indication: Analgesic therapy
     Route: 065
     Dates: start: 2011, end: 2021
  11. CEPHALEXIN [Concomitant]
     Active Substance: CEPHALEXIN
     Indication: Infection
     Route: 065
     Dates: start: 2017
  12. CIPROFLOXACIN [Concomitant]
     Active Substance: CIPROFLOXACIN
     Indication: Infection
     Route: 065
     Dates: start: 2019
  13. CIPROFLOXACIN [Concomitant]
     Active Substance: CIPROFLOXACIN
     Indication: Diarrhoea
     Route: 065
     Dates: start: 2019
  14. DOXYCYCLINE [Concomitant]
     Active Substance: DOXYCYCLINE
     Indication: Infection
     Route: 065
     Dates: start: 2008, end: 2018
  15. ZESTRIL [Concomitant]
     Active Substance: LISINOPRIL
     Indication: Blood pressure abnormal
     Route: 065
     Dates: start: 2015, end: 2019
  16. ZESTRIL [Concomitant]
     Active Substance: LISINOPRIL
     Indication: Blood pressure abnormal
     Route: 065
     Dates: start: 2018, end: 2019
  17. FUROSEMIDE [Concomitant]
     Active Substance: FUROSEMIDE
     Indication: Oedema
     Route: 065
     Dates: start: 2018, end: 2019
  18. HYDROCHLOROTHIAZIDE [Concomitant]
     Active Substance: HYDROCHLOROTHIAZIDE
     Indication: Blood pressure abnormal
     Route: 065
     Dates: start: 2015, end: 2018
  19. SPIRONOLACTONE [Concomitant]
     Active Substance: SPIRONOLACTONE
     Indication: Blood pressure abnormal
     Route: 065
     Dates: start: 2018
  20. TORSEMIDE [Concomitant]
     Active Substance: TORSEMIDE
     Indication: Oedema
     Route: 065
     Dates: start: 2019, end: 2021
  21. DEMADEX [Concomitant]
     Active Substance: TORSEMIDE
     Indication: Oedema
     Route: 065
     Dates: start: 2019
  22. ATORVASTATIN [Concomitant]
     Active Substance: ATORVASTATIN
     Indication: Blood cholesterol decreased
     Route: 065
     Dates: start: 2021
  23. HYDRALAZINE [Concomitant]
     Active Substance: HYDRALAZINE HYDROCHLORIDE
     Indication: Blood pressure abnormal
     Route: 065
     Dates: start: 2018, end: 2021
  24. VITAMIN D [Concomitant]
     Active Substance: VITAMIN D NOS
     Indication: Vitamin D decreased
     Route: 065
     Dates: start: 2019
  25. ZANTAC [Concomitant]
     Active Substance: RANITIDINE HYDROCHLORIDE
     Route: 065
     Dates: start: 2005, end: 2010
  26. CIMETIDINE [Concomitant]
     Active Substance: CIMETIDINE
     Route: 065
     Dates: start: 2005, end: 2010
  27. FAMOTIDINE [Concomitant]
     Active Substance: FAMOTIDINE
     Route: 065
     Dates: start: 2005, end: 2010
  28. NIZATIDINE [Concomitant]
     Active Substance: NIZATIDINE
     Route: 065
     Dates: start: 2005, end: 2010
  29. TUMS [Concomitant]
     Active Substance: CALCIUM CARBONATE
     Route: 065
     Dates: start: 2005, end: 2010
  30. MILK OF MAGNESIA [Concomitant]
     Active Substance: MAGNESIUM HYDROXIDE
     Route: 065
     Dates: start: 2005, end: 2010
  31. GABAPENTIN [Concomitant]
     Active Substance: GABAPENTIN
  32. COLCHICINE [Concomitant]
     Active Substance: COLCHICINE
  33. AMLODIPINE [Concomitant]
     Active Substance: AMLODIPINE BESYLATE
  34. CYCLOBENZAPRINE [Concomitant]
     Active Substance: CYCLOBENZAPRINE
  35. TIZANIDINE [Concomitant]
     Active Substance: TIZANIDINE
  36. PIOGLITAZONE [Concomitant]
     Active Substance: PIOGLITAZONE
  37. SERTRALINE [Concomitant]
     Active Substance: SERTRALINE HYDROCHLORIDE
  38. ALBUTEROL [Concomitant]
     Active Substance: ALBUTEROL
  39. DIAZEPAM [Concomitant]
     Active Substance: DIAZEPAM
  40. BENZONATATE [Concomitant]
     Active Substance: BENZONATATE
  41. OXYCODONE [Concomitant]
     Active Substance: OXYCODONE
  42. METHYLPREDNISOLONE [Concomitant]
     Active Substance: METHYLPREDNISOLONE
  43. PROMETHAZINE [Concomitant]
     Active Substance: PROMETHAZINE HYDROCHLORIDE
  44. METOLAZONE [Concomitant]
     Active Substance: METOLAZONE
  45. ONDANSETRON [Concomitant]
     Active Substance: ONDANSETRON
  46. CALCITRIOL [Concomitant]
     Active Substance: CALCITRIOL
  47. BUTALBITAL [Concomitant]
     Active Substance: BUTALBITAL
  48. NITROFURANTOIN [Concomitant]
     Active Substance: NITROFURANTOIN
  49. FLUCONAZOLE [Concomitant]
     Active Substance: FLUCONAZOLE
  50. CLOTRIMAZOLE [Concomitant]
     Active Substance: CLOTRIMAZOLE
  51. BACLOFEN [Concomitant]
     Active Substance: BACLOFEN
  52. DIPHENHYDRAMINE [Concomitant]
     Active Substance: DIPHENHYDRAMINE
  53. LORAZEPAM [Concomitant]
     Active Substance: LORAZEPAM
  54. POLYETHYLENE GLYCOL [Concomitant]
     Active Substance: POLYETHYLENE GLYCOL
  55. NITROGLYCERIN [Concomitant]
     Active Substance: NITROGLYCERIN
  56. ZOLPIDEM [Concomitant]
     Active Substance: ZOLPIDEM TARTRATE
  57. GLUCAGON [Concomitant]
     Active Substance: GLUCAGON
  58. SIMETHICONE (DIMETHICONE) [Concomitant]
     Active Substance: DIMETHICONE
  59. CARBOXYMETHYLCELLULOSE [Concomitant]
     Active Substance: CARBOXYMETHYLCELLULOSE

REACTIONS (4)
  - Acute kidney injury [Not Recovered/Not Resolved]
  - Chronic kidney disease [Not Recovered/Not Resolved]
  - Tubulointerstitial nephritis [Not Recovered/Not Resolved]
  - Gastrooesophageal reflux disease [Not Recovered/Not Resolved]

NARRATIVE: CASE EVENT DATE: 20180101
